FAERS Safety Report 8701674 (Version 4)
Quarter: 2012Q4

REPORT INFORMATION
  Report Type: 
  Country: CA (occurrence: CA)
  Receive Date: 20120803
  Receipt Date: 20120927
  Transmission Date: 20130627
  Serious: Yes (Life-Threatening, Hospitalization)
  Sender: FDA-Public Use
  Company Number: CA-BRISTOL-MYERS SQUIBB COMPANY-16824534

PATIENT
  Age: 64 Year
  Sex: Male

DRUGS (6)
  1. SPRYCEL [Suspect]
     Indication: CHRONIC MYELOID LEUKAEMIA
     Dosage: last dose:2Aug12
     Route: 048
     Dates: start: 20120701, end: 20120802
  2. HYDREA [Suspect]
  3. METFORMIN [Concomitant]
  4. COVERSYL [Concomitant]
  5. LASIX [Concomitant]
  6. TIAZAC [Concomitant]

REACTIONS (3)
  - Cardiac failure congestive [Not Recovered/Not Resolved]
  - Pleural effusion [Not Recovered/Not Resolved]
  - Pneumonia [Unknown]
